FAERS Safety Report 4806732-5 (Version None)
Quarter: 2005Q4

REPORT INFORMATION
  Report Type: 
  Country: None (occurrence: None)
  Receive Date: 20051019
  Receipt Date: 20051010
  Transmission Date: 20060501
  Serious: Yes (Hospitalization, Other)
  Sender: FDA-Public Use
  Company Number: HQWYE948710OCT05

PATIENT
  Age: 34 Year
  Sex: Female

DRUGS (5)
  1. RAPAMUNE [Suspect]
     Dosage: 6 MG 1X PER 1 DAY ORAL
     Route: 048
     Dates: start: 20040226
  2. BACTRIM [Suspect]
     Dosage: 1.0 DAILY ORAL
     Route: 048
     Dates: start: 20040225
  3. CELLCEPT [Suspect]
     Dosage: 1500 MG 1X PER 1 DAY ORAL
     Route: 048
     Dates: start: 20040226
  4. SLOW-K [Concomitant]
  5. ASPIRIN [Concomitant]

REACTIONS (6)
  - BLOOD KETONE BODY INCREASED [None]
  - DIARRHOEA [None]
  - LETHARGY [None]
  - NAUSEA [None]
  - TUBERCULOSIS [None]
  - VOMITING [None]
